FAERS Safety Report 11108935 (Version 1)
Quarter: 2015Q2

REPORT INFORMATION
  Report Type: Spontaneous
  Country: US (occurrence: None)
  Receive Date: 20150511
  Receipt Date: 20150511
  Transmission Date: 20150821
  Serious: Yes (Life-Threatening, Other)
  Sender: FDA-Public Use
  Company Number: None

PATIENT
  Age: 33 Year
  Sex: Male
  Weight: 83.92 kg

DRUGS (3)
  1. VENTOLIN [Suspect]
     Active Substance: ALBUTEROL SULFATE
     Indication: COUGH
     Dates: start: 20150509, end: 20150510
  2. MEDROL [Concomitant]
     Active Substance: METHYLPREDNISOLONE
  3. VENTOLIN [Suspect]
     Active Substance: ALBUTEROL SULFATE
     Indication: DYSPNOEA
     Dates: start: 20150509, end: 20150510

REACTIONS (1)
  - Hiccups [None]

NARRATIVE: CASE EVENT DATE: 20150510
